FAERS Safety Report 10234172 (Version 1)
Quarter: 2014Q2

REPORT INFORMATION
  Report Type: Spontaneous
  Country: FR (occurrence: FR)
  Receive Date: 20140612
  Receipt Date: 20140612
  Transmission Date: 20141212
  Serious: Yes (Other)
  Sender: FDA-Public Use
  Company Number: FR-GLAXOSMITHKLINE-B1002781A

PATIENT
  Age: 60 Year
  Sex: Female

DRUGS (1)
  1. ACICLOVIR [Suspect]
     Indication: GENITAL HERPES
     Route: 048
     Dates: start: 201402

REACTIONS (4)
  - Neutrophil count decreased [Not Recovered/Not Resolved]
  - Red blood cell count decreased [Recovering/Resolving]
  - Platelet count decreased [Recovering/Resolving]
  - Asthenia [Not Recovered/Not Resolved]
